FAERS Safety Report 6464324-9 (Version None)
Quarter: 2009Q4

REPORT INFORMATION
  Report Type: 
  Country: None (occurrence: None)
  Receive Date: 20091116
  Receipt Date: 20090810
  Transmission Date: 20100525
  Serious: No
  Sender: FDA-Public Use
  Company Number: WAES 0908USA01618

PATIENT
  Age: 27 Year
  Sex: Male

DRUGS (6)
  1. ISENTRESS [Suspect]
     Indication: HIV INFECTION
  2. HCV-796 [Concomitant]
  3. REYATAZ [Concomitant]
  4. TRUVADA [Concomitant]
  5. ETRAVIRINE [Concomitant]
  6. RITONAVIR [Concomitant]

REACTIONS (2)
  - NEUROMYELITIS OPTICA [None]
  - OPTIC NEURITIS [None]
